FAERS Safety Report 10137653 (Version 2)
Quarter: 2014Q2

REPORT INFORMATION
  Report Type: Spontaneous
  Country: NO (occurrence: NO)
  Receive Date: 20140429
  Receipt Date: 20140506
  Transmission Date: 20141212
  Serious: Yes (Hospitalization, Other)
  Sender: FDA-Public Use
  Company Number: NO-PFIZER INC-2014113222

PATIENT
  Age: 50 Year
  Sex: Male

DRUGS (11)
  1. METHYLPREDNISOLONE SODIUM SUCCINATE [Suspect]
     Indication: ANTI-GLOMERULAR BASEMENT MEMBRANE ANTIBODY POSITIVE
     Dosage: 1 G, DAILY
     Route: 042
  2. METHYLPREDNISOLONE SODIUM SUCCINATE [Suspect]
     Indication: GLOMERULONEPHRITIS
  3. CYCLOPHOSPHAMIDE [Suspect]
     Indication: ANTI-GLOMERULAR BASEMENT MEMBRANE ANTIBODY POSITIVE
     Dosage: 100 MG, DAILY
     Route: 048
  4. CYCLOPHOSPHAMIDE [Suspect]
     Indication: GLOMERULONEPHRITIS
     Dosage: 50 MG, DAILY
     Route: 048
  5. METRONIDAZOLE [Suspect]
     Indication: CLOSTRIDIUM COLITIS
     Dosage: UNK
  6. TRIMETHOPRIM SULFA [Suspect]
     Indication: ANTIFUNGAL PROPHYLAXIS
     Dosage: 1 TABLET ONCE DAILY
  7. ERYTHROMYCIN [Suspect]
     Indication: RESPIRATORY TRACT INFECTION
     Route: 065
  8. PREDNISONE [Suspect]
     Indication: GLOMERULONEPHRITIS
     Dosage: 60 MG, DAILY
     Route: 048
  9. PREDNISONE [Suspect]
     Indication: ANTI-GLOMERULAR BASEMENT MEMBRANE ANTIBODY POSITIVE
     Dosage: 30 MG, DAILY
  10. AZATHIOPRINE [Suspect]
     Dosage: 50 MG, DAILY
  11. CEFOTAXIME [Suspect]
     Indication: SEPSIS
     Dosage: UNK

REACTIONS (6)
  - Leukopenia [Recovered/Resolved]
  - Cytomegalovirus infection [Recovered/Resolved]
  - Thrombosis [Recovered/Resolved]
  - Neutropenia [Recovered/Resolved]
  - Bone marrow failure [Recovered/Resolved]
  - Diarrhoea [Recovered/Resolved]
